FAERS Safety Report 10856245 (Version 1)
Quarter: 2015Q1

REPORT INFORMATION
  Report Type: Spontaneous
  Country: DE (occurrence: DE)
  Receive Date: 20150223
  Receipt Date: 20150223
  Transmission Date: 20150721
  Serious: Yes (Hospitalization)
  Sender: FDA-Public Use
  Company Number: DE-MYLANLABS-2015M1005554

PATIENT

DRUGS (2)
  1. NITROUS OXIDE W/OXYGEN [Interacting]
     Active Substance: NITROUS OXIDE\OXYGEN
     Indication: SEDATIVE THERAPY
     Dosage: 50%/50%
     Route: 045
  2. METHOTREXATE [Suspect]
     Active Substance: METHOTREXATE
     Indication: B PRECURSOR TYPE ACUTE LEUKAEMIA
     Dosage: 3 DOSES
     Route: 037

REACTIONS (2)
  - Drug interaction [Recovered/Resolved with Sequelae]
  - Neurotoxicity [Recovered/Resolved with Sequelae]
